FAERS Safety Report 23297977 (Version 1)
Quarter: 2023Q4

REPORT INFORMATION
  Report Type: Spontaneous
  Country: CA (occurrence: CA)
  Receive Date: 20231214
  Receipt Date: 20231214
  Transmission Date: 20240110
  Serious: Yes (Hospitalization, Other)
  Sender: FDA-Public Use
  Company Number: CA-FreseniusKabi-FK202320367

PATIENT
  Sex: Male

DRUGS (2)
  1. MORPHINE SULFATE [Suspect]
     Active Substance: MORPHINE SULFATE
     Indication: Product used for unknown indication
     Dosage: FORM OF ADMIN.- NOT SPECIFIED
  2. MS CONTIN [Suspect]
     Active Substance: MORPHINE SULFATE
     Indication: Back pain
     Dosage: FORM OF ADMIN.- TABLET (EXTENDED-RELEASE)?ROUTE OF ADMIN.- ORAL

REACTIONS (13)
  - Brain injury [Unknown]
  - Anxiety [Unknown]
  - Asthenia [Unknown]
  - Depression [Unknown]
  - Drug abuse [Unknown]
  - Drug dependence [Unknown]
  - Fall [Unknown]
  - Irritability [Unknown]
  - Loss of consciousness [Unknown]
  - Mental impairment [Unknown]
  - Overdose [Unknown]
  - Renal failure [Unknown]
  - Subdural haematoma [Unknown]
